FAERS Safety Report 9880312 (Version 2)
Quarter: 2014Q1

REPORT INFORMATION
  Report Type: Report from Study
  Country: ES (occurrence: ES)
  Receive Date: 20140207
  Receipt Date: 20140207
  Transmission Date: 20141002
  Serious: Yes (Hospitalization)
  Sender: FDA-Public Use
  Company Number: ES-009507513-1309ESP011568

PATIENT
  Age: 66 Year
  Sex: Female

DRUGS (4)
  1. BOCEPREVIR [Suspect]
     Indication: CHRONIC HEPATITIS C
     Dosage: 2400 MG, QD, DURATION 37 WEEKS
     Route: 048
     Dates: start: 20121026
  2. COPEGUS [Suspect]
     Indication: CHRONIC HEPATITIS C
     Dosage: 1000 MG, QD DURATION 41 WEEKS
     Route: 048
     Dates: start: 20120928
  3. PEGINTERFERON ALFA-2A [Suspect]
     Indication: CHRONIC HEPATITIS C
     Dosage: 180 MICROGRAM, QD DURATION 41 WEEKS, TTD
     Route: 058
     Dates: start: 20121028
  4. LEVOFLOXACIN [Concomitant]
     Dosage: TOTAL DAILY DOSE: 200
     Dates: start: 20130716, end: 20130723

REACTIONS (2)
  - Pneumonia [Recovered/Resolved]
  - Drug interaction [Unknown]
